FAERS Safety Report 8823603 (Version 1)
Quarter: 2012Q4

REPORT INFORMATION
  Report Type: 
  Country: US (occurrence: US)
  Receive Date: 20121003
  Receipt Date: 20121003
  Transmission Date: 20130627
  Serious: Yes (Other)
  Sender: FDA-Public Use
  Company Number: CHPA2012US020687

PATIENT
  Age: 66 Year
  Sex: Male

DRUGS (2)
  1. NUPERCAINAL HEMORRHOIDAL/ANES OINTMENT [Suspect]
     Indication: BURNING SENSATION
     Dosage: UNK, UNK
     Route: 061
  2. DIBUCAINE [Concomitant]
     Dosage: Unk, Unk

REACTIONS (5)
  - Colitis ulcerative [Not Recovered/Not Resolved]
  - Off label use [Unknown]
  - Therapeutic response unexpected [Unknown]
  - Overdose [Unknown]
  - Incorrect dose administered [Unknown]
